FAERS Safety Report 21125082 (Version 3)
Quarter: 2023Q1

REPORT INFORMATION
  Report Type: Report from Study
  Country: BE (occurrence: BE)
  Receive Date: 20220725
  Receipt Date: 20230302
  Transmission Date: 20230417
  Serious: Yes (Hospitalization)
  Sender: FDA-Public Use
  Company Number: BE-JNJFOC-20220731475

PATIENT
  Age: 58 Year
  Sex: Male
  Weight: 67 kg

DRUGS (18)
  1. BORTEZOMIB [Suspect]
     Active Substance: BORTEZOMIB
     Indication: Plasma cell myeloma
     Dosage: 1.3 MILLILITER
     Route: 058
     Dates: start: 20220215, end: 20220225
  2. BORTEZOMIB [Suspect]
     Active Substance: BORTEZOMIB
     Dosage: 0.956 MILLILITER
     Route: 058
     Dates: start: 20220308, end: 20220701
  3. DEXAMETHASONE [Suspect]
     Active Substance: DEXAMETHASONE
     Indication: Plasma cell myeloma
     Dosage: 20 MILLIGRAM
     Route: 048
     Dates: start: 20220215, end: 20230226
  4. DEXAMETHASONE [Suspect]
     Active Substance: DEXAMETHASONE
     Dosage: 20 MILLIGRAM
     Route: 048
     Dates: start: 20220308, end: 20220702
  5. LENALIDOMIDE [Suspect]
     Active Substance: LENALIDOMIDE
     Indication: Plasma cell myeloma
     Dosage: 25 MILLIGRAM
     Route: 048
     Dates: start: 20220215, end: 20220228
  6. LENALIDOMIDE [Suspect]
     Active Substance: LENALIDOMIDE
     Dosage: 25 MILLIGRAM
     Route: 048
     Dates: start: 20220308, end: 20220705
  7. IBUPROFEN [Concomitant]
     Active Substance: IBUPROFEN
     Indication: Bone pain
     Dosage: 600 MILLIGRAM, TID
     Route: 048
     Dates: start: 20220218
  8. BUPRENORPHINE HYDROCHLORIDE [Concomitant]
     Active Substance: BUPRENORPHINE HYDROCHLORIDE
     Indication: Bone pain
     Dosage: 200 MILLIGRAM
     Route: 060
  9. ACYCLOVIR [Concomitant]
     Active Substance: ACYCLOVIR
     Indication: Antiviral prophylaxis
     Dosage: 800 MILLIGRAM
     Route: 048
     Dates: end: 20220705
  10. ASPIRIN [Concomitant]
     Active Substance: ASPIRIN
     Indication: Cardiovascular event prophylaxis
     Dosage: 80 MILLIGRAM, QD
     Route: 048
  11. ATORVASTATIN [Concomitant]
     Active Substance: ATORVASTATIN
     Indication: Cholelithiasis
     Dosage: 20 MILLIGRAM, QD
     Route: 048
  12. ALIZAPRIDE HYDROCHLORIDE [Concomitant]
     Active Substance: ALIZAPRIDE HYDROCHLORIDE
     Indication: Nausea
     Dosage: 50 MILLIGRAM
     Route: 048
  13. BUPRENORPHINE [Concomitant]
     Active Substance: BUPRENORPHINE
     Indication: Bone pain
     Dosage: 35 MICROGRAM, 2/WEEK
     Route: 062
  14. ESOMEPRAZOLE [Concomitant]
     Active Substance: ESOMEPRAZOLE
     Indication: Gastrooesophageal reflux disease
     Dosage: 40 MILLIGRAM, QD
     Route: 048
  15. LANREOTIDE ACETATE [Concomitant]
     Active Substance: LANREOTIDE ACETATE
     Indication: Dumping syndrome
     Dosage: 90 MILLIGRAM, MONTHLY
     Route: 058
  16. CILGAVIMAB [Concomitant]
     Active Substance: CILGAVIMAB
     Indication: COVID-19 prophylaxis
     Dosage: UNK
     Route: 058
     Dates: start: 20220708, end: 20220708
  17. TIXAGEVIMAB [Concomitant]
     Active Substance: TIXAGEVIMAB
     Indication: COVID-19 prophylaxis
     Dosage: UNK
     Route: 058
     Dates: start: 20220708, end: 20220708
  18. LORMETAZEPAM [Concomitant]
     Active Substance: LORMETAZEPAM
     Indication: Insomnia
     Dosage: 2 MILLIGRAM, QD
     Route: 048
     Dates: start: 20220701

REACTIONS (1)
  - Tension headache [Recovering/Resolving]

NARRATIVE: CASE EVENT DATE: 20220705
